FAERS Safety Report 6098117-1 (Version None)
Quarter: 2009Q1

REPORT INFORMATION
  Report Type: 
  Country: None (occurrence: None)
  Receive Date: 20090227
  Receipt Date: 20090218
  Transmission Date: 20090719
  Serious: Yes (Other)
  Sender: FDA-Public Use
  Company Number: US-B.I. PHARMACEUTICALS,INC./RIDGEFIELD-2009-BP-01957BP

PATIENT
  Age: 24 Year
  Sex: Female

DRUGS (1)
  1. DULCOLAX [Suspect]
     Dosage: 15-20MG EVERY DAY
     Route: 048

REACTIONS (1)
  - DRUG ABUSE [None]
